FAERS Safety Report 8779964 (Version 1)
Quarter: 2012Q4

REPORT INFORMATION
  Report Type: Spontaneous
  Country: US (occurrence: None)
  Receive Date: 20120905
  Receipt Date: 20120905
  Transmission Date: 20130627
  Serious: Yes (Other)
  Sender: FDA-Public Use
  Company Number: None

PATIENT
  Age: 16 Year
  Sex: Female
  Weight: 49.9 kg

DRUGS (1)
  1. RETIN-A [Suspect]

REACTIONS (2)
  - Arthritis [None]
  - Arthralgia [None]
